FAERS Safety Report 10615703 (Version 3)
Quarter: 2014Q4

REPORT INFORMATION
  Report Type: Spontaneous
  Country: US (occurrence: US)
  Receive Date: 20141201
  Receipt Date: 20141212
  Transmission Date: 20150529
  Serious: Yes (Hospitalization)
  Sender: FDA-Public Use
  Company Number: US-UNITED THERAPEUTICS-UNT-2014-009201

PATIENT
  Age: 50 Year
  Sex: Female
  Weight: 111.11 kg

DRUGS (6)
  1. TYVASO [Suspect]
     Active Substance: TREPROSTINIL
     Indication: PULMONARY HYPERTENSION
     Dosage: 18 TO 54 ?G, QID
     Dates: start: 20140425
  2. LETAIRIS [Concomitant]
     Active Substance: AMBRISENTAN
     Indication: PRODUCT USED FOR UNKNOWN INDICATION
  3. TYVASO [Suspect]
     Active Substance: TREPROSTINIL
     Indication: COR PULMONALE CHRONIC
     Dosage: 18 TO 54 ?G, QID
     Dates: start: 20140421
  4. COUMADIN [Concomitant]
     Active Substance: WARFARIN SODIUM
     Indication: PRODUCT USED FOR UNKNOWN INDICATION
  5. REVATIO [Concomitant]
     Active Substance: SILDENAFIL CITRATE
     Indication: PRODUCT USED FOR UNKNOWN INDICATION
  6. TYVASO [Suspect]
     Active Substance: TREPROSTINIL
     Dosage: 18 TO 54 ?G, QID
     Dates: start: 20140425

REACTIONS (6)
  - Fluid retention [Recovering/Resolving]
  - Fluid overload [Recovered/Resolved]
  - Adverse drug reaction [Unknown]
  - Therapy cessation [Unknown]
  - Cardiac failure congestive [Unknown]
  - Dyspnoea [Recovering/Resolving]

NARRATIVE: CASE EVENT DATE: 2014
